FAERS Safety Report 18978964 (Version 2)
Quarter: 2021Q2

REPORT INFORMATION
  Report Type: Report from Study
  Country: None (occurrence: IT)
  Receive Date: 20210308
  Receipt Date: 20210405
  Transmission Date: 20210717
  Serious: Yes (Death)
  Sender: FDA-Public Use
  Company Number: IT-ABBVIE-21K-083-3803811-00

PATIENT
  Age: 30 Year
  Sex: Male

DRUGS (11)
  1. VENETOCLAX. [Suspect]
     Active Substance: VENETOCLAX
     Indication: T-CELL TYPE ACUTE LEUKAEMIA
     Route: 048
     Dates: start: 20201214, end: 20210223
  2. NAVITOCLAX [Suspect]
     Active Substance: NAVITOCLAX
     Indication: ACUTE MYELOID LEUKAEMIA
     Route: 065
     Dates: start: 20201214, end: 20210223
  3. BACTRIM [Concomitant]
     Active Substance: SULFAMETHOXAZOLE\TRIMETHOPRIM
     Indication: PRODUCT USED FOR UNKNOWN INDICATION
     Dosage: 160+800 MG ONCE DAYLY
     Route: 048
     Dates: start: 202012
  4. ACICLOVIR [Concomitant]
     Active Substance: ACYCLOVIR
     Indication: PRODUCT USED FOR UNKNOWN INDICATION
     Dosage: BID
     Route: 048
     Dates: start: 202012
  5. ABSTRAL [Concomitant]
     Active Substance: FENTANYL CITRATE
     Indication: PRODUCT USED FOR UNKNOWN INDICATION
     Route: 048
     Dates: start: 202012
  6. FULKRO [Concomitant]
     Indication: PRODUCT USED FOR UNKNOWN INDICATION
     Route: 048
     Dates: start: 202101
  7. VENETOCLAX. [Suspect]
     Active Substance: VENETOCLAX
     Indication: ACUTE MYELOID LEUKAEMIA
  8. JURNISTA [Concomitant]
     Active Substance: HYDROMORPHONE HYDROCHLORIDE
     Indication: PRODUCT USED FOR UNKNOWN INDICATION
     Route: 048
     Dates: start: 202101
  9. PANTOPRAZOLE [Concomitant]
     Active Substance: PANTOPRAZOLE
     Indication: PRODUCT USED FOR UNKNOWN INDICATION
     Route: 048
     Dates: start: 202012
  10. ESKIM [Concomitant]
     Active Substance: OMEGA-3 FATTY ACIDS
     Indication: PRODUCT USED FOR UNKNOWN INDICATION
     Dosage: BID
     Route: 048
     Dates: start: 202012
  11. LYRICA [Concomitant]
     Active Substance: PREGABALIN
     Indication: PRODUCT USED FOR UNKNOWN INDICATION
     Dosage: BID
     Route: 048
     Dates: start: 202012

REACTIONS (3)
  - Off label use [Recovered/Resolved]
  - Disease progression [Fatal]
  - Septic shock [Fatal]

NARRATIVE: CASE EVENT DATE: 20210122
